FAERS Safety Report 22193106 (Version 1)
Quarter: 2023Q2

REPORT INFORMATION
  Report Type: Spontaneous
  Country: US (occurrence: None)
  Receive Date: 20230410
  Receipt Date: 20230410
  Transmission Date: 20230721
  Serious: Yes (Hospitalization)
  Sender: FDA-Public Use
  Company Number: None

PATIENT
  Age: 56 Year
  Sex: Female
  Weight: 72 kg

DRUGS (1)
  1. ABILIFY [Suspect]
     Active Substance: ARIPIPRAZOLE
     Indication: Drug therapy
     Dosage: OTHER QUANTITY : 2 TABLET(S);?FREQUENCY : DAILY;?
     Route: 048

REACTIONS (10)
  - Bone pain [None]
  - Back pain [None]
  - Headache [None]
  - Epistaxis [None]
  - Pyrexia [None]
  - Dizziness [None]
  - Oropharyngeal pain [None]
  - Nausea [None]
  - Constipation [None]
  - Anxiety [None]

NARRATIVE: CASE EVENT DATE: 20230405
